FAERS Safety Report 9159906 (Version 8)
Quarter: 2014Q3

REPORT INFORMATION
  Report Type: Spontaneous
  Country: US (occurrence: None)
  Receive Date: 20130212
  Receipt Date: 20140708
  Transmission Date: 20150326
  Serious: Yes (Death, Hospitalization, Other)
  Sender: FDA-Public Use
  Company Number: 2013P1002049

PATIENT
  Age: 61 Year
  Sex: Female
  Weight: 78 kg

DRUGS (7)
  1. CARVEDILOL. [Concomitant]
     Active Substance: CARVEDILOL
  2. WARFARIN SODIUM. [Concomitant]
     Active Substance: WARFARIN SODIUM
  3. TAMSULOSIN [Concomitant]
     Active Substance: TAMSULOSIN
  4. UNKNOWN ( ILLEGIBLE) [Concomitant]
  5. EPOPROSTENOL SODIUM. [Suspect]
     Active Substance: EPOPROSTENOL SODIUM
     Indication: PULMONARY ARTERIAL HYPERTENSION
     Dosage: 80 NG/KG/MIN; IV
     Route: 042
     Dates: start: 20000306
  6. FRUSEMIDE [Concomitant]
     Active Substance: FUROSEMIDE
  7. DIGOXIN (DIGOXIN) [Suspect]
     Active Substance: DIGOXIN

REACTIONS (9)
  - Overdose [None]
  - Nasopharyngitis [None]
  - Hospice care [None]
  - Eye haemorrhage [None]
  - Toxicity to various agents [None]
  - Confusional state [None]
  - Pulmonary arterial hypertension [None]
  - Altered state of consciousness [None]
  - Weight decreased [None]

NARRATIVE: CASE EVENT DATE: 201208
